FAERS Safety Report 4830569-4 (Version None)
Quarter: 2005Q4

REPORT INFORMATION
  Report Type: 
  Country: None (occurrence: None)
  Receive Date: 20051115
  Receipt Date: 20051104
  Transmission Date: 20060501
  Serious: Yes (Hospitalization, Other)
  Sender: FDA-Public Use
  Company Number: 2004114443

PATIENT
  Sex: Female
  Weight: 66.5 kg

DRUGS (5)
  1. DILANTIN KAPSEAL [Suspect]
     Indication: CONVULSION
     Dosage: 300 MG (300 MG, 1 IN 1 D), ORAL
     Route: 048
     Dates: end: 20041222
  2. CLOBAZAM (CLOBAZAM) [Concomitant]
  3. DEPAKENE [Concomitant]
  4. VITAMINS (VITAMINS) [Concomitant]
  5. CALCIUM (CALCIUM) [Concomitant]

REACTIONS (18)
  - ALANINE AMINOTRANSFERASE INCREASED [None]
  - ANTICONVULSANT DRUG LEVEL INCREASED [None]
  - ASPARTATE AMINOTRANSFERASE INCREASED [None]
  - ASTHMA [None]
  - BLOOD CHOLESTEROL INCREASED [None]
  - BLOOD GLUCOSE INCREASED [None]
  - DRUG INEFFECTIVE [None]
  - HEPATIC MASS [None]
  - HEPATOSPLENOMEGALY [None]
  - INGUINAL HERNIA, OBSTRUCTIVE [None]
  - LYMPHADENOPATHY [None]
  - OSTEOMA CUTIS [None]
  - OSTEOPENIA [None]
  - OVARIAN CYST [None]
  - PSEUDO LYMPHOMA [None]
  - SOMNOLENCE [None]
  - UTERINE LEIOMYOMA [None]
  - WEIGHT INCREASED [None]
